FAERS Safety Report 6257697-3 (Version None)
Quarter: 2009Q3

REPORT INFORMATION
  Report Type: 
  Country: None (occurrence: None)
  Receive Date: 20090706
  Receipt Date: 20090629
  Transmission Date: 20100115
  Serious: Yes (Death, Hospitalization)
  Sender: FDA-Public Use
  Company Number: SE-TEVA-200150ISR

PATIENT
  Age: 67 Year
  Sex: Female

DRUGS (3)
  1. FLUOROURACIL [Suspect]
     Indication: GASTROINTESTINAL NEOPLASM
  2. FOLINIC ACID [Suspect]
     Indication: GASTROINTESTINAL NEOPLASM
  3. GEMCITABINE [Suspect]
     Indication: GASTROINTESTINAL NEOPLASM

REACTIONS (1)
  - PAROSMIA [None]
